FAERS Safety Report 17600560 (Version 1)
Quarter: 2020Q1

REPORT INFORMATION
  Report Type: Spontaneous
  Country: BE (occurrence: BE)
  Receive Date: 20200330
  Receipt Date: 20200330
  Transmission Date: 20200409
  Serious: Yes (Other)
  Sender: FDA-Public Use
  Company Number: BE-AMGEN-BELSP2020049883

PATIENT

DRUGS (1)
  1. NPLATE [Suspect]
     Active Substance: ROMIPLOSTIM
     Indication: IMMUNE THROMBOCYTOPENIC PURPURA
     Dosage: UNK
     Route: 065
     Dates: start: 20200312

REACTIONS (3)
  - Therapy non-responder [Unknown]
  - Hepatic cirrhosis [Unknown]
  - Portal vein thrombosis [Unknown]

NARRATIVE: CASE EVENT DATE: 202003
